FAERS Safety Report 4766376-0 (Version None)
Quarter: 2005Q3

REPORT INFORMATION
  Report Type: 
  Country: None (occurrence: None)
  Receive Date: 20050909
  Receipt Date: 20050905
  Transmission Date: 20060218
  Serious: Yes (Death)
  Sender: FDA-Public Use
  Company Number: EM2005-0355

PATIENT
  Age: 65 Year
  Sex: Male
  Weight: 58 kg

DRUGS (12)
  1. MACROLIN [Suspect]
     Indication: HIV INFECTION
     Dosage: SUBCUTAN.
     Route: 058
     Dates: start: 20030204, end: 20030208
  2. MACROLIN [Suspect]
     Indication: HIV INFECTION
     Dosage: SUBCUTAN.
     Route: 058
     Dates: start: 20030318, end: 20030322
  3. MACROLIN [Suspect]
     Indication: HIV INFECTION
     Dosage: SUBCUTAN.
     Route: 058
     Dates: start: 20030518, end: 20030522
  4. MACROLIN [Suspect]
     Indication: HIV INFECTION
     Dosage: SUBCUTAN.
     Route: 058
     Dates: start: 20030707, end: 20030711
  5. MACROLIN [Suspect]
     Indication: HIV INFECTION
     Dosage: SUBCUTAN.
     Route: 058
     Dates: start: 20030826, end: 20030830
  6. MACROLIN [Suspect]
     Indication: HIV INFECTION
     Dosage: SUBCUTAN.
     Route: 058
     Dates: start: 20031021, end: 20031025
  7. MACROLIN [Suspect]
     Indication: HIV INFECTION
     Dosage: SUBCUTAN.
     Route: 058
     Dates: start: 20030128
  8. BACTRIM [Concomitant]
  9. NEVIRAPINE [Concomitant]
  10. COMBIVIR [Concomitant]
  11. ZIAGEN [Concomitant]
  12. EFFERALGAN (PARACETAMOL) [Concomitant]

REACTIONS (1)
  - LUNG NEOPLASM MALIGNANT [None]
